FAERS Safety Report 4876309-4 (Version None)
Quarter: 2006Q1

REPORT INFORMATION
  Report Type: 
  Country: None (occurrence: None)
  Receive Date: 20060110
  Receipt Date: 20060105
  Transmission Date: 20060701
  Serious: Yes (Hospitalization)
  Sender: FDA-Public Use
  Company Number: US-BOEHRINGER INGELHEIM PHARMACEUTICALS, INC.-2006-BP-00134BP

PATIENT
  Sex: Female
  Weight: 62.6 kg

DRUGS (5)
  1. PRAMIPEXOLE TABLETS [Suspect]
     Indication: EYE DISORDER
     Route: 048
     Dates: start: 20051020
  2. PRAMIPEXOLE TABLETS [Suspect]
     Indication: PARKINSON'S DISEASE
  3. AMIODARONE [Suspect]
     Indication: ATRIAL FIBRILLATION
     Route: 048
  4. LASIX [Suspect]
     Indication: CARDIAC FAILURE CONGESTIVE
     Route: 048
  5. UNITHROID [Suspect]
     Indication: HYPOTHYROIDISM
     Route: 048
     Dates: start: 20051014

REACTIONS (5)
  - ATRIAL TACHYCARDIA [None]
  - CARDIAC FAILURE CONGESTIVE [None]
  - CONDITION AGGRAVATED [None]
  - DYSPNOEA [None]
  - TACHYCARDIA [None]
